FAERS Safety Report 10995296 (Version 1)
Quarter: 2015Q2

REPORT INFORMATION
  Report Type: Spontaneous
  Country: US (occurrence: US)
  Receive Date: 20150407
  Receipt Date: 20150407
  Transmission Date: 20150821
  Serious: No
  Sender: FDA-Public Use
  Company Number: US-TEVA-549303USA

PATIENT
  Sex: Female
  Weight: 77.18 kg

DRUGS (1)
  1. SEASONIQUE [Suspect]
     Active Substance: ETHINYL ESTRADIOL\LEVONORGESTREL
     Indication: ORAL CONTRACEPTION
     Dosage: FORM OF ADM UNKNOWN
     Route: 065

REACTIONS (2)
  - Menorrhagia [Unknown]
  - Anaemia [Unknown]
